FAERS Safety Report 10913688 (Version 3)
Quarter: 2015Q2

REPORT INFORMATION
  Report Type: Spontaneous
  Country: JP (occurrence: JP)
  Receive Date: 20150313
  Receipt Date: 20150501
  Transmission Date: 20150821
  Serious: Yes (Hospitalization)
  Sender: FDA-Public Use
  Company Number: JP-ASTELLAS-2015JP005362

PATIENT
  Age: 87 Year
  Sex: Male
  Weight: 58 kg

DRUGS (6)
  1. BETANIS [Concomitant]
     Active Substance: MIRABEGRON
     Indication: HYPERTONIC BLADDER
     Route: 048
     Dates: start: 20141028, end: 20150209
  2. XTANDI [Suspect]
     Active Substance: ENZALUTAMIDE
     Route: 048
     Dates: start: 20150210, end: 20150223
  3. XTANDI [Suspect]
     Active Substance: ENZALUTAMIDE
     Indication: HORMONE-REFRACTORY PROSTATE CANCER
     Route: 048
     Dates: start: 20141028, end: 20150209
  4. ZOLADEX LA [Concomitant]
     Active Substance: GOSERELIN ACETATE
     Indication: HORMONE-REFRACTORY PROSTATE CANCER
     Dosage: 10.8 MG, ONCE EVERY 3 MONTHS
     Route: 058
     Dates: start: 20081215, end: 20150127
  5. GLUCOSE [Concomitant]
     Active Substance: DEXTROSE
     Indication: HYPERNATRAEMIA
     Route: 065
     Dates: start: 20150224, end: 20150224
  6. GLUCOSE [Concomitant]
     Active Substance: DEXTROSE
     Indication: MALNUTRITION
     Route: 065
     Dates: start: 20150302

REACTIONS (5)
  - Postrenal failure [Recovered/Resolved]
  - Fatigue [Recovering/Resolving]
  - Malnutrition [Not Recovered/Not Resolved]
  - Hypernatraemia [Recovering/Resolving]
  - Pyelonephritis acute [Recovered/Resolved]

NARRATIVE: CASE EVENT DATE: 20150210
